FAERS Safety Report 24054166 (Version 1)
Quarter: 2024Q3

REPORT INFORMATION
  Report Type: Spontaneous
  Country: AT (occurrence: AT)
  Receive Date: 20240705
  Receipt Date: 20240705
  Transmission Date: 20241016
  Serious: Yes (Other)
  Sender: CELLTRION
  Company Number: AT-CELLTRION INC.-2024AT015775

PATIENT

DRUGS (15)
  1. RITUXIMAB [Suspect]
     Active Substance: RITUXIMAB
     Indication: Diffuse large B-cell lymphoma
     Dosage: 779.74 MILLIGRAM, DAY 1
     Route: 042
     Dates: start: 20230201, end: 20230517
  2. RITUXIMAB [Suspect]
     Active Substance: RITUXIMAB
     Dosage: 797.23 MILLIGRAM, DAY 1
     Route: 042
  3. RITUXIMAB [Suspect]
     Active Substance: RITUXIMAB
     Dosage: 771.79 MG (BINDING THERAPY)
     Dates: start: 20231026
  4. TAFASITAMAB [Suspect]
     Active Substance: TAFASITAMAB
     Indication: Diffuse large B-cell lymphoma
     Dosage: 1008 MILLIGRAM, WEEKLY
     Route: 042
     Dates: start: 20230201, end: 20230517
  5. TAFASITAMAB [Suspect]
     Active Substance: TAFASITAMAB
     Dosage: 1063 MG,WEEKLY
     Dates: start: 20230531
  6. LENALIDOMIDE [Suspect]
     Active Substance: LENALIDOMIDE
     Indication: Diffuse large B-cell lymphoma
     Dosage: 25 MILLIGRAM, QD
     Route: 048
     Dates: start: 20230201, end: 20230523
  7. LENALIDOMIDE [Suspect]
     Active Substance: LENALIDOMIDE
     Dosage: 10 MG
  8. CYCLOPHOSPHAMIDE [Suspect]
     Active Substance: CYCLOPHOSPHAMIDE
     Indication: Diffuse large B-cell lymphoma
     Dosage: 1599.48 MILLIGRAM, DAY 2
     Route: 042
     Dates: start: 20230201
  9. CYCLOPHOSPHAMIDE [Suspect]
     Active Substance: CYCLOPHOSPHAMIDE
     Dosage: 1594.45 MILLIGRAM, DAY 1
     Route: 042
     Dates: start: 20230201, end: 20230517
  10. DOXORUBICIN [Suspect]
     Active Substance: DOXORUBICIN
     Indication: Diffuse large B-cell lymphoma
     Dosage: UNK
     Route: 042
     Dates: start: 20230201, end: 20230517
  11. VINCRISTINE [Suspect]
     Active Substance: VINCRISTINE
     Indication: Diffuse large B-cell lymphoma
     Dosage: 2 MILLIGRAM,DAY 2
     Route: 042
     Dates: start: 20230201
  12. VINCRISTINE [Suspect]
     Active Substance: VINCRISTINE
     Dosage: 2 MILLIGRAM, DAY 1
     Route: 042
  13. PREDNISOLONE [Suspect]
     Active Substance: PREDNISOLONE
     Indication: Diffuse large B-cell lymphoma
     Dosage: 100 MILLIGRAM, DAY 1-5
     Route: 048
     Dates: start: 20230201, end: 20230517
  14. BENDAMUSTINE [Suspect]
     Active Substance: BENDAMUSTINE
     Indication: Diffuse large B-cell lymphoma
     Dosage: 185.23 MG (BINDING THERAPY)
     Dates: start: 20231026, end: 20231027
  15. POLATUZUMAB VEDOTIN [Suspect]
     Active Substance: POLATUZUMAB VEDOTIN
     Indication: Diffuse large B-cell lymphoma
     Dosage: 147.6 MILLIGRAM (BINDING THERAPY)
     Dates: start: 20231026

REACTIONS (2)
  - Adenocarcinoma [Recovered/Resolved]
  - Disease progression [Unknown]

NARRATIVE: CASE EVENT DATE: 20231010
